FAERS Safety Report 17430641 (Version 1)
Quarter: 2020Q1

REPORT INFORMATION
  Report Type: Spontaneous
  Country: US (occurrence: US)
  Receive Date: 20200218
  Receipt Date: 20200218
  Transmission Date: 20200409
  Serious: No
  Sender: FDA-Public Use
  Company Number: US-PERRIGO-19US006598

PATIENT
  Sex: Female
  Weight: 81.63 kg

DRUGS (2)
  1. KETOCONAZOLE. [Suspect]
     Active Substance: KETOCONAZOLE
     Dosage: SMALL AMOUNT, PRN
     Route: 061
     Dates: start: 201905, end: 20190521
  2. KETOCONAZOLE. [Suspect]
     Active Substance: KETOCONAZOLE
     Indication: DANDRUFF
     Dosage: SMALL AMOUNT, PRN
     Route: 061
     Dates: start: 2009, end: 201905

REACTIONS (3)
  - Drug effective for unapproved indication [Unknown]
  - Condition aggravated [Not Recovered/Not Resolved]
  - Therapeutic product effect decreased [Unknown]

NARRATIVE: CASE EVENT DATE: 2009
